FAERS Safety Report 7635960-9 (Version None)
Quarter: 2011Q3

REPORT INFORMATION
  Report Type: 
  Country: None (occurrence: None)
  Receive Date: 20110726
  Receipt Date: 20110714
  Transmission Date: 20111222
  Serious: Yes (Hospitalization)
  Sender: FDA-Public Use
  Company Number: JP-ROCHE-728563

PATIENT
  Sex: Female
  Weight: 51.3 kg

DRUGS (10)
  1. KETOPROFEN [Concomitant]
     Dosage: FORM: TAPE
     Route: 061
  2. TOCILIZUMAB [Suspect]
     Indication: RHEUMATOID ARTHRITIS
     Route: 042
     Dates: start: 20100723
  3. PREDNISOLONE [Suspect]
     Indication: RHEUMATOID ARTHRITIS
     Route: 048
  4. VOLTAREN [Suspect]
     Indication: RHEUMATOID ARTHRITIS
     Dosage: AFTER THE BREAKFAST 1 X
     Route: 048
  5. PLACEBO [Suspect]
     Indication: RHEUMATOID ARTHRITIS
     Dosage: DRUG NAME WAS REPORTED AS BLINDED MRA-SC (TOCILIZUMAB)
     Route: 058
     Dates: start: 20100723, end: 20100930
  6. PRORENAL [Suspect]
     Indication: SPINAL COLUMN STENOSIS
     Dosage: BEGINNING OF DOSAGE DAY: TRIAL PREINITIATION
     Route: 048
  7. ROXATIDINE ACETATE HCL [Concomitant]
     Route: 048
  8. THYRADIN [Concomitant]
     Route: 048
  9. FAMOTIDINE [Concomitant]
     Route: 048
  10. AMLODIPINE [Concomitant]
     Route: 048

REACTIONS (1)
  - COLITIS ISCHAEMIC [None]
